FAERS Safety Report 25207654 (Version 2)
Quarter: 2025Q2

REPORT INFORMATION
  Report Type: Spontaneous
  Country: US (occurrence: US)
  Receive Date: 20250417
  Receipt Date: 20250422
  Transmission Date: 20250716
  Serious: Yes (Other)
  Sender: RANBAXY
  Company Number: US-SUN PHARMACEUTICAL INDUSTRIES LTD-2025R1-503951

PATIENT
  Sex: Female
  Weight: 0.89 kg

DRUGS (1)
  1. SILDENAFIL [Suspect]
     Active Substance: SILDENAFIL
     Indication: Pulmonary hypertension
     Route: 064

REACTIONS (3)
  - Premature baby [Unknown]
  - Low birth weight baby [Unknown]
  - Foetal exposure during pregnancy [Unknown]
